FAERS Safety Report 8162686-8 (Version None)
Quarter: 2012Q1

REPORT INFORMATION
  Report Type: 
  Country: None (occurrence: None)
  Receive Date: 20120103
  Receipt Date: 20111117
  Transmission Date: 20120608
  Serious: No
  Sender: FDA-Public Use
  Company Number: AE-2011-003630

PATIENT
  Age: 59 Year
  Sex: Male
  Weight: 75.2971 kg

DRUGS (6)
  1. RIBAVIRIN [Concomitant]
  2. PEGASYS [Concomitant]
  3. INCIVEK [Suspect]
     Dosage: 2250 MG (750 MG, 1IN 8 HR),ORAL
     Route: 048
     Dates: start: 20111112
  4. ASPIRIN [Concomitant]
  5. DESIPRAMINE HCL [Concomitant]
  6. LISINOPRIL [Concomitant]

REACTIONS (2)
  - SKIN BURNING SENSATION [None]
  - RASH PRURITIC [None]
